FAERS Safety Report 9640237 (Version 4)
Quarter: 2013Q4

REPORT INFORMATION
  Report Type: Spontaneous
  Country: US (occurrence: US)
  Receive Date: 20131023
  Receipt Date: 20131211
  Transmission Date: 20140711
  Serious: Yes (Disabling, Other)
  Sender: FDA-Public Use
  Company Number: US-PFIZER INC-2013301621

PATIENT
  Sex: Male

DRUGS (2)
  1. LYRICA [Suspect]
     Dosage: 450 MG, DAILY
  2. LYRICA [Suspect]
     Dosage: 300 MG, UNK

REACTIONS (10)
  - Back injury [Unknown]
  - Spinal column stenosis [Unknown]
  - Pain in extremity [Recovering/Resolving]
  - Blister rupture [Recovering/Resolving]
  - Local swelling [Recovered/Resolved]
  - Local swelling [Unknown]
  - Swelling face [Unknown]
  - Scar [Unknown]
  - Rash [Unknown]
  - Memory impairment [Unknown]
